FAERS Safety Report 16877765 (Version 1)
Quarter: 2019Q4

REPORT INFORMATION
  Report Type: Spontaneous
  Country: US (occurrence: US)
  Receive Date: 20191002
  Receipt Date: 20191002
  Transmission Date: 20200122
  Serious: No
  Sender: FDA-Public Use
  Company Number: None

PATIENT
  Age: 69 Year
  Sex: Female
  Weight: 80.55 kg

DRUGS (8)
  1. QUINAPTIL [Concomitant]
  2. HYDROCODONE-ACETAMIN [Suspect]
     Active Substance: ACETAMINOPHEN\HYDROCODONE
     Indication: PAIN
     Dosage: ?          QUANTITY:1 TABLET(S);?
     Route: 048
     Dates: start: 20191001, end: 20191001
  3. ATERVASTATIN [Concomitant]
  4. VITAMIN [Concomitant]
     Active Substance: VITAMINS
  5. BUPROPION XL [Concomitant]
     Active Substance: BUPROPION
  6. METHIMAZOLE. [Concomitant]
     Active Substance: METHIMAZOLE
  7. CALCIUM WITH D [Concomitant]
     Active Substance: CALCIUM\VITAMIN D
  8. FLUOXETINE [Concomitant]
     Active Substance: FLUOXETINE HYDROCHLORIDE

REACTIONS (3)
  - Vomiting [None]
  - Headache [None]
  - Nausea [None]

NARRATIVE: CASE EVENT DATE: 20191001
